FAERS Safety Report 5059599-7 (Version None)
Quarter: 2006Q3

REPORT INFORMATION
  Report Type: 
  Country: None (occurrence: None)
  Receive Date: 20060724
  Receipt Date: 20060718
  Transmission Date: 20061208
  Serious: Yes (Hospitalization)
  Sender: FDA-Public Use
  Company Number: FR-AVENTIS-200612532FR

PATIENT
  Age: 79 Year
  Sex: Female

DRUGS (13)
  1. FLAGYL [Suspect]
     Indication: CHOLECYSTITIS
     Route: 048
     Dates: start: 20060601
  2. OFLOXACINE [Suspect]
     Indication: CHOLECYSTITIS
     Route: 048
     Dates: start: 20060601, end: 20060603
  3. MINISINTROM [Suspect]
     Indication: CARDIAC FAILURE
     Route: 048
     Dates: end: 20060529
  4. MINISINTROM [Suspect]
     Route: 048
     Dates: start: 20060531, end: 20060602
  5. LASILIX [Concomitant]
     Route: 048
  6. DIGOXIN [Concomitant]
  7. NEXIUM [Concomitant]
     Route: 048
  8. EFFEXOR [Concomitant]
     Route: 048
  9. DIFFU K [Concomitant]
  10. CONTRAMAL [Concomitant]
  11. TRANSIPEG [Concomitant]
  12. IMOVANE [Concomitant]
  13. DAFALGAN [Concomitant]

REACTIONS (5)
  - DRUG INTERACTION [None]
  - HYPOALBUMINAEMIA [None]
  - INTERNATIONAL NORMALISED RATIO INCREASED [None]
  - MALNUTRITION [None]
  - PROTHROMBIN LEVEL DECREASED [None]
